FAERS Safety Report 5331854-2 (Version None)
Quarter: 2007Q2

REPORT INFORMATION
  Report Type: 
  Country: None (occurrence: None)
  Receive Date: 20070306
  Receipt Date: 20051201
  Transmission Date: 20071010
  Serious: Yes (Hospitalization)
  Sender: FDA-Public Use
  Company Number: A03200504002

PATIENT
  Age: 65 Year
  Sex: Male
  Weight: 78.0187 kg

DRUGS (1)
  1. PLAVIX [Suspect]
     Indication: MYOCARDIAL INFARCTION
     Dosage: 75 MG QD ORAL
     Route: 048
     Dates: start: 20051026

REACTIONS (4)
  - DRUG RESISTANCE [None]
  - MYOCARDIAL INFARCTION [None]
  - PRESCRIBED OVERDOSE [None]
  - STENT OCCLUSION [None]
